FAERS Safety Report 9069993 (Version 1)
Quarter: 2013Q1

REPORT INFORMATION
  Report Type: Spontaneous
  Country: US (occurrence: US)
  Receive Date: 20130129
  Receipt Date: 20130129
  Transmission Date: 20140127
  Serious: No
  Sender: FDA-Public Use
  Company Number: US-ABBOTT-12P-163-0938970-00

PATIENT
  Age: 35 None
  Sex: Female
  Weight: 127.12 kg

DRUGS (14)
  1. HUMIRA 40 MG/0.8 ML PEN [Suspect]
     Indication: RHEUMATOID ARTHRITIS
     Dates: start: 201112
  2. ZOLOFT [Concomitant]
     Indication: DEPRESSION
  3. TRILEPTAL [Concomitant]
     Indication: BIPOLAR DISORDER
  4. TRAZODONE [Concomitant]
     Indication: INSOMNIA
  5. METOPROLOL ER [Concomitant]
     Indication: HYPERTENSION
  6. LISINOPRIL/HCTZ [Concomitant]
     Indication: HYPERTENSION
  7. CRESTOR [Concomitant]
     Indication: BLOOD CHOLESTEROL INCREASED
  8. ASPIRIN [Concomitant]
     Indication: CARDIOVASCULAR EVENT PROPHYLAXIS
  9. HYDROCHLOROTHIAZIDE [Concomitant]
     Indication: FLUID RETENTION
  10. OMEPRAZOLE [Concomitant]
     Indication: ILL-DEFINED DISORDER
  11. METHOTREXATE [Concomitant]
     Indication: RHEUMATOID ARTHRITIS
  12. SULFASALAZINE [Concomitant]
     Indication: RHEUMATOID ARTHRITIS
  13. FOLIC ACID [Concomitant]
     Indication: RHEUMATOID ARTHRITIS
  14. IBUPROFEN [Concomitant]
     Indication: RHEUMATOID ARTHRITIS

REACTIONS (4)
  - Injection site bruising [Not Recovered/Not Resolved]
  - Injection site erythema [Recovered/Resolved]
  - Injection site pain [Recovered/Resolved]
  - Injection site pruritus [Recovered/Resolved]
